FAERS Safety Report 20357354 (Version 4)
Quarter: 2024Q1

REPORT INFORMATION
  Report Type: Report from Study
  Country: US (occurrence: US)
  Receive Date: 20220120
  Receipt Date: 20240116
  Transmission Date: 20240410
  Serious: Yes (Other)
  Sender: FDA-Public Use
  Company Number: US-JAZZ-2021-US-024695

PATIENT
  Age: 33 Year
  Sex: Female

DRUGS (11)
  1. XYREM [Suspect]
     Active Substance: SODIUM OXYBATE
     Indication: Narcolepsy
     Dosage: 1.5 GRAM, BID
     Route: 048
     Dates: start: 201307, end: 201307
  2. XYREM [Suspect]
     Active Substance: SODIUM OXYBATE
     Indication: Somnolence
     Dosage: 1.5 GRAM
     Route: 048
     Dates: start: 201702, end: 201702
  3. XYREM [Suspect]
     Active Substance: SODIUM OXYBATE
     Dosage: DOSE ADJUSTMENT
     Route: 048
     Dates: start: 201702, end: 201909
  4. XYREM [Suspect]
     Active Substance: SODIUM OXYBATE
     Dosage: 3 GRAM, BID
     Route: 048
     Dates: start: 202006, end: 202111
  5. XYREM [Suspect]
     Active Substance: SODIUM OXYBATE
     Dosage: 6 MILLILITER, BID
     Route: 048
  6. CARBAMAZEPINE [Concomitant]
     Active Substance: CARBAMAZEPINE
     Indication: Product used for unknown indication
     Dosage: UNK
     Dates: start: 20231113
  7. AMPHETAMINE\DEXTROAMPHETAMINE [Concomitant]
     Active Substance: AMPHETAMINE\DEXTROAMPHETAMINE
     Indication: Product used for unknown indication
     Dosage: 10 MG TABLET
     Route: 048
  8. AMPHETAMINE\DEXTROAMPHETAMINE [Concomitant]
     Active Substance: AMPHETAMINE\DEXTROAMPHETAMINE
     Dosage: 15 MG CAPSULE, EXTEND RELEASE
     Route: 048
  9. AMPHETAMINE\DEXTROAMPHETAMINE [Concomitant]
     Active Substance: AMPHETAMINE\DEXTROAMPHETAMINE
     Dosage: 30 MG CAPSULE, EXTEND RELEASE
     Route: 048
  10. HYDROXYZINE [Concomitant]
     Active Substance: HYDROXYZINE HYDROCHLORIDE
     Indication: Product used for unknown indication
     Dosage: UNK
     Route: 048
  11. VITAMIN D3 [Concomitant]
     Active Substance: CHOLECALCIFEROL
     Indication: Product used for unknown indication
     Dosage: UNK
     Route: 048

REACTIONS (6)
  - Surgery [Unknown]
  - Suicidal ideation [Recovered/Resolved]
  - Suicide attempt [Recovered/Resolved]
  - Conversion disorder [Unknown]
  - Neck pain [Not Recovered/Not Resolved]
  - Post-traumatic stress disorder [Unknown]

NARRATIVE: CASE EVENT DATE: 20181201
